FAERS Safety Report 16500431 (Version 1)
Quarter: 2019Q3

REPORT INFORMATION
  Report Type: Spontaneous
  Country: US (occurrence: US)
  Receive Date: 20190701
  Receipt Date: 20190701
  Transmission Date: 20191004
  Serious: Yes (Other)
  Sender: FDA-Public Use
  Company Number: US-JNJFOC-20190625575

PATIENT
  Age: 65 Year
  Sex: Male
  Weight: 96.7 kg

DRUGS (1)
  1. INVOKANA [Suspect]
     Active Substance: CANAGLIFLOZIN
     Indication: PRODUCT USED FOR UNKNOWN INDICATION
     Route: 048

REACTIONS (5)
  - Cellulitis [Recovered/Resolved]
  - Toe amputation [Unknown]
  - Impaired healing [Unknown]
  - Diabetic foot [Recovering/Resolving]
  - Osteomyelitis chronic [Unknown]

NARRATIVE: CASE EVENT DATE: 20130627
